FAERS Safety Report 9729867 (Version 2)
Quarter: 2014Q1

REPORT INFORMATION
  Report Type: Spontaneous
  Country: US (occurrence: US)
  Receive Date: 20131204
  Receipt Date: 20140127
  Transmission Date: 20141002
  Serious: Yes (Other)
  Sender: FDA-Public Use
  Company Number: US-BAYER-2013-147891

PATIENT
  Age: 26 Year
  Sex: Female
  Weight: 96.15 kg

DRUGS (6)
  1. MIRENA [Suspect]
     Indication: CONTRACEPTION
     Dosage: 20 MCG/24HR, CONT
     Route: 015
     Dates: start: 20071101, end: 20090713
  2. SYNTHROID [Concomitant]
  3. METHOTREXATE [Concomitant]
  4. REMICADE [Concomitant]
  5. FOLIC ACID [Concomitant]
  6. CLARITIN [Concomitant]

REACTIONS (4)
  - Uterine perforation [None]
  - Injury [None]
  - Pain [None]
  - Emotional distress [None]
